FAERS Safety Report 11940744 (Version 1)
Quarter: 2016Q1

REPORT INFORMATION
  Report Type: Report from Study
  Country: US (occurrence: US)
  Receive Date: 20160122
  Receipt Date: 20160122
  Transmission Date: 20160526
  Serious: No
  Sender: FDA-Public Use
  Company Number: PHEH2016US001208

PATIENT
  Age: 48 Year
  Sex: Male

DRUGS (1)
  1. COSENTYX [Suspect]
     Active Substance: SECUKINUMAB
     Indication: PSORIASIS
     Dosage: 300 MG, QW FOR FIVE DOSES, FOLLOWED BY ONCE A MONTH DOSE
     Route: 058
     Dates: start: 20150616

REACTIONS (2)
  - Inflammation [Unknown]
  - Psoriasis [Unknown]

NARRATIVE: CASE EVENT DATE: 20150616
